FAERS Safety Report 15392663 (Version 1)
Quarter: 2018Q4

REPORT INFORMATION
  Report Type: Spontaneous
  Country: DE (occurrence: DE)
  Receive Date: 20180917
  Receipt Date: 20180917
  Transmission Date: 20190204
  Serious: Yes (Disabling, Congenital Anomaly, Other)
  Sender: FDA-Public Use
  Company Number: DE-TEVA-2018-DE-954964

PATIENT

DRUGS (5)
  1. ZOLPIDEM [Suspect]
     Active Substance: ZOLPIDEM\ZOLPIDEM TARTRATE
     Indication: RESTLESSNESS
  2. ZOLPIDEM [Suspect]
     Active Substance: ZOLPIDEM\ZOLPIDEM TARTRATE
     Indication: DEPRESSION
     Dosage: APPLICATION ON 2 DAYS IN THE ABOVE-MENTIONED PERIOD
     Route: 064
     Dates: start: 20180412, end: 20180607
  3. ATOSIL (ISOPROMETHAZINE HYDROCHLORIDE) [Suspect]
     Active Substance: ISOPROMETHAZINE HYDROCHLORIDE
     Indication: DEPRESSION
  4. MARIJUANA [Concomitant]
     Active Substance: CANNABIS SATIVA SUBSP. INDICA TOP
     Dosage: PRAEKONZEPTIONELL 3-5X WEEKLY
     Dates: end: 20180411
  5. ATOSIL (ISOPROMETHAZINE HYDROCHLORIDE) [Suspect]
     Active Substance: ISOPROMETHAZINE HYDROCHLORIDE
     Indication: RESTLESSNESS
     Dosage: UP TO 30 DROPS
     Route: 064
     Dates: start: 20180412, end: 20180607

REACTIONS (2)
  - Foetal exposure during pregnancy [Not Recovered/Not Resolved]
  - Gastroschisis [Not Recovered/Not Resolved]

NARRATIVE: CASE EVENT DATE: 2018
